FAERS Safety Report 8971399 (Version 1)
Quarter: 2012Q4

REPORT INFORMATION
  Report Type: 
  Country: FR (occurrence: FR)
  Receive Date: 20121217
  Receipt Date: 20121217
  Transmission Date: 20130627
  Serious: Yes (Life-Threatening, Hospitalization)
  Sender: FDA-Public Use
  Company Number: FR-GILEAD-2012-0066461

PATIENT
  Age: 58 Year
  Sex: Male

DRUGS (7)
  1. HEPSERA [Suspect]
     Indication: PRODUCT USED FOR UNKNOWN INDICATION
  2. MYCOPHENOLATE MOFETIL [Suspect]
     Indication: LIVER TRANSPLANT
     Dosage: 1250 mg, BID
     Route: 048
     Dates: start: 20080513, end: 20080813
  3. MYCOPHENOLATE MOFETIL [Suspect]
     Dosage: 1250 mg, BID
     Route: 048
     Dates: start: 20080816
  4. PROGRAF [Suspect]
     Indication: LIVER TRANSPLANT
     Dosage: 0.5 mg, UNK
     Dates: start: 20080809, end: 20080813
  5. PROGRAF [Suspect]
     Dosage: 2 mg, UNK
     Dates: start: 20080817, end: 20080819
  6. BACTRIM [Suspect]
     Indication: PRODUCT USED FOR UNKNOWN INDICATION
  7. CORTANCYL [Concomitant]
     Indication: LIVER TRANSPLANT
     Dosage: 5 mg, UNK
     Route: 048

REACTIONS (1)
  - Pancreatitis [Recovered/Resolved]
